FAERS Safety Report 4478621-X (Version None)
Quarter: 2004Q4

REPORT INFORMATION
  Report Type: 
  Country: None (occurrence: None)
  Receive Date: 20041019
  Receipt Date: 20041004
  Transmission Date: 20050328
  Serious: Yes (Death, Hospitalization)
  Sender: FDA-Public Use
  Company Number: 200420024GDDC

PATIENT
  Age: 60 Year
  Sex: Male

DRUGS (1)
  1. TRENTAL [Suspect]
     Indication: HEPATITIS ALCOHOLIC
     Route: 048
     Dates: start: 20040107, end: 20040116

REACTIONS (9)
  - DIARRHOEA [None]
  - GASTRIC ULCER HAEMORRHAGE [None]
  - GASTROINTESTINAL HAEMORRHAGE [None]
  - HAEMATOCRIT DECREASED [None]
  - HEPATIC FAILURE [None]
  - HEPATORENAL FAILURE [None]
  - PLATELET COUNT DECREASED [None]
  - RENAL FAILURE [None]
  - THROMBOCYTOPENIA [None]
